FAERS Safety Report 8083921-0 (Version None)
Quarter: 2012Q1

REPORT INFORMATION
  Report Type: 
  Country: None (occurrence: None)
  Receive Date: 20120128
  Receipt Date: 20110113
  Transmission Date: 20120608
  Serious: No
  Sender: FDA-Public Use
  Company Number: US-ABBOTT-11P-163-0697420-00

PATIENT
  Sex: Female
  Weight: 80.812 kg

DRUGS (5)
  1. BUPROPION HYDROCHLORIDE [Concomitant]
     Indication: ANXIETY
  2. PAROXETINE [Concomitant]
     Indication: DEPRESSION
  3. HUMIRA [Suspect]
     Indication: PSORIASIS
  4. LIPITOR [Suspect]
     Indication: BLOOD CHOLESTEROL
     Dosage: 2-3 YEARS
  5. LEVOTHYROXINE SODIUM [Concomitant]
     Indication: PRODUCT USED FOR UNKNOWN INDICATION

REACTIONS (5)
  - ARTHRALGIA [None]
  - NASOPHARYNGITIS [None]
  - COUGH [None]
  - PSORIATIC ARTHROPATHY [None]
  - PAIN IN EXTREMITY [None]
